FAERS Safety Report 19302363 (Version 1)
Quarter: 2021Q2

REPORT INFORMATION
  Report Type: Spontaneous
  Country: US (occurrence: US)
  Receive Date: 20210525
  Receipt Date: 20210525
  Transmission Date: 20210717
  Serious: No
  Sender: FDA-Public Use
  Company Number: US-PFIZER INC-2015435608

PATIENT
  Age: 68 Year
  Sex: Female
  Weight: 61 kg

DRUGS (21)
  1. LYRICA [Suspect]
     Active Substance: PREGABALIN
     Indication: BACK DISORDER
     Dosage: 100 MG, THREE TIMES A DAY (MAX DAILY AMOUNT: 300 MG)
     Route: 048
  2. VITAMIN D3 [Concomitant]
     Active Substance: CHOLECALCIFEROL
     Dosage: 3000 IU, UNK
     Route: 048
  3. ULTRAM [Concomitant]
     Active Substance: TRAMADOL HYDROCHLORIDE
     Dosage: 100 MG, AS NEEDED (TAKE 2 TABLETS BY MOUTH EVERY 8 HOURS AS NEEDED. MAX DAILY AMOUNT: 300 MG)
     Route: 048
  4. COZAAR [Concomitant]
     Active Substance: LOSARTAN POTASSIUM
     Dosage: 100 MG, 1X/DAY
     Route: 048
  5. MOBIC [Concomitant]
     Active Substance: MELOXICAM
     Dosage: 7.5 MG, 2X/DAY
     Route: 048
  6. FORTEO [Concomitant]
     Active Substance: TERIPARATIDE
     Dosage: 20 UG, 1X/DAY (20 MCG/DOSE ? 600 MCG/2.4 ML PEN INJECTOR)
     Route: 058
  7. LIPITOR [Concomitant]
     Active Substance: ATORVASTATIN CALCIUM
     Dosage: 40 MG, 1X/DAY (AT BEDTIME)
     Route: 048
  8. KLONOPIN [Concomitant]
     Active Substance: CLONAZEPAM
     Dosage: 1 MG, 2X/DAY (MAX DAILY AMOUNT: 2 MG)
     Route: 048
  9. LYRICA [Suspect]
     Active Substance: PREGABALIN
     Indication: SPINAL OSTEOARTHRITIS
  10. NORVASC [Concomitant]
     Active Substance: AMLODIPINE BESYLATE
     Dosage: 10 MG, 1X/DAY
     Route: 048
  11. NORMODYNE [Concomitant]
     Active Substance: LABETALOL HYDROCHLORIDE
     Dosage: 100 MG, 1X/DAY
     Route: 048
  12. SPECTRAVITE SENIOR ORAL [Concomitant]
     Dosage: UNK UNK, 1X/DAY
     Route: 048
  13. LYRICA [Suspect]
     Active Substance: PREGABALIN
     Indication: INTERVERTEBRAL DISC DEGENERATION
  14. LYRICA [Suspect]
     Active Substance: PREGABALIN
     Indication: BACK PAIN
  15. LYRICA [Suspect]
     Active Substance: PREGABALIN
     Indication: NEURALGIA
  16. LYRICA [Suspect]
     Active Substance: PREGABALIN
     Indication: HERNIA
  17. LYRICA [Suspect]
     Active Substance: PREGABALIN
     Indication: SCIATICA
  18. PROVENTIL [Concomitant]
     Active Substance: ALBUTEROL
     Dosage: 220 UG, AS NEEDED
     Route: 048
  19. PRILOSEC [Concomitant]
     Active Substance: OMEPRAZOLE MAGNESIUM
     Dosage: 20 MG, 1X/DAY
     Route: 048
  20. OSCAL [Concomitant]
     Active Substance: CALCIUM CARBONATE
     Dosage: 1500 MG, 2X/DAY
     Route: 048
  21. MEDROL [Concomitant]
     Active Substance: METHYLPREDNISOLONE
     Dosage: 2 MG, 1X/DAY
     Route: 048

REACTIONS (1)
  - Feeling abnormal [Unknown]
